FAERS Safety Report 20451965 (Version 2)
Quarter: 2022Q1

REPORT INFORMATION
  Report Type: Spontaneous
  Country: IT (occurrence: IT)
  Receive Date: 20220209
  Receipt Date: 20220223
  Transmission Date: 20220423
  Serious: Yes (Other)
  Sender: FDA-Public Use
  Company Number: IT-NOVARTISPH-NVSC2022IT028207

PATIENT
  Age: 13 Year
  Sex: Male

DRUGS (1)
  1. ADALIMUMAB [Suspect]
     Active Substance: ADALIMUMAB
     Indication: Uveitis
     Dosage: UNK
     Route: 065
     Dates: start: 201710

REACTIONS (6)
  - IgA nephropathy [Recovering/Resolving]
  - Juvenile idiopathic arthritis [Recovered/Resolved]
  - Nephropathy toxic [Unknown]
  - Uveitis [Recovered/Resolved]
  - Haematuria [Recovering/Resolving]
  - Proteinuria [Recovering/Resolving]

NARRATIVE: CASE EVENT DATE: 20201101
